FAERS Safety Report 8321997-3 (Version None)
Quarter: 2012Q2

REPORT INFORMATION
  Report Type: 
  Country: None (occurrence: None)
  Receive Date: 20120430
  Receipt Date: 20120426
  Transmission Date: 20120825
  Serious: No
  Sender: FDA-Public Use
  Company Number: US-PFIZER INC-2012104561

PATIENT
  Sex: Male
  Weight: 117 kg

DRUGS (3)
  1. LIPITOR [Concomitant]
     Indication: BLOOD CHOLESTEROL INCREASED
     Dosage: 20 MG, DAILY
  2. NEXIUM [Concomitant]
     Indication: GASTRIC DISORDER
     Dosage: 20 MG, DAILY
  3. NICOTROL [Suspect]
     Indication: SMOKING CESSATION THERAPY
     Dosage: UNK
     Route: 055
     Dates: start: 20120425, end: 20120425

REACTIONS (2)
  - COUGH [None]
  - DRUG INEFFECTIVE [None]
